FAERS Safety Report 7402972-X (Version None)
Quarter: 2011Q2

REPORT INFORMATION
  Report Type: 
  Country: None (occurrence: None)
  Receive Date: 20110408
  Receipt Date: 20110404
  Transmission Date: 20111010
  Serious: Yes (Other)
  Sender: FDA-Public Use
  Company Number: GB-NAPPMUNDI-GBR-2011-0008019

PATIENT
  Sex: Male

DRUGS (2)
  1. BUTRANS TRANSDERMAL PATCH [Suspect]
     Indication: PRODUCT USED FOR UNKNOWN INDICATION
     Dosage: 20 MCG, Q1H
     Route: 062
     Dates: start: 20110328
  2. BUTRANS TRANSDERMAL PATCH [Suspect]
     Dosage: 10 MCG, Q1H

REACTIONS (4)
  - WHEEZING [None]
  - RASH [None]
  - SWELLING [None]
  - DYSPNOEA [None]
